FAERS Safety Report 9407940 (Version 1)
Quarter: 2013Q3

REPORT INFORMATION
  Report Type: Spontaneous
  Country: IN (occurrence: IN)
  Receive Date: 20130718
  Receipt Date: 20130718
  Transmission Date: 20140515
  Serious: Yes (Other)
  Sender: FDA-Public Use
  Company Number: IN-MYLANLABS-2013S1015261

PATIENT
  Age: 65 Year
  Sex: Female

DRUGS (5)
  1. ATORVASTATIN [Suspect]
     Dosage: 10 MG/DAY
     Route: 065
  2. CLOPIDOGREL [Interacting]
     Dosage: 75 MG/DAY
     Route: 065
  3. AMLODIPINE [Interacting]
     Dosage: 10 MG/DAY
     Route: 065
  4. FUROSEMIDE [Concomitant]
     Dosage: 40MG BDS
     Route: 065
  5. INSULIN [Concomitant]
     Route: 065

REACTIONS (3)
  - Rhabdomyolysis [Recovering/Resolving]
  - Renal failure acute [Recovering/Resolving]
  - Drug interaction [Recovering/Resolving]
